FAERS Safety Report 4276599-5 (Version None)
Quarter: 2004Q1

REPORT INFORMATION
  Report Type: 
  Country: None (occurrence: None)
  Receive Date: 20040120
  Receipt Date: 20040114
  Transmission Date: 20041129
  Serious: Yes (Death)
  Sender: FDA-Public Use
  Company Number: 163-20785-03120496

PATIENT
  Age: 83 Year
  Sex: Female

DRUGS (2)
  1. THALOMID [Suspect]
     Indication: MULTIPLE MYELOMA
     Dosage: 150 MG, QD, ORAL
     Route: 048
     Dates: start: 20031107, end: 20031115
  2. THALOMID [Suspect]

REACTIONS (1)
  - RESPIRATORY FAILURE [None]
